FAERS Safety Report 4915918-0 (Version None)
Quarter: 2006Q1

REPORT INFORMATION
  Report Type: 
  Country: None (occurrence: None)
  Receive Date: 20060214
  Receipt Date: 20060202
  Transmission Date: 20060701
  Serious: Yes (Other)
  Sender: FDA-Public Use
  Company Number: 221734

PATIENT
  Age: 14 Year
  Sex: Female
  Weight: 33.4 kg

DRUGS (2)
  1. NUTROPIN AQ [Suspect]
     Indication: GASTROINTESTINAL DISORDER
     Dosage: 1.5 MG, SUBCUTANEOUS
     Route: 058
     Dates: start: 20051101
  2. TPN (HYPERALIMENTATION) [Concomitant]

REACTIONS (1)
  - JOINT DISLOCATION [None]
